FAERS Safety Report 10558984 (Version 1)
Quarter: 2014Q4

REPORT INFORMATION
  Report Type: Spontaneous
  Country: JP (occurrence: JP)
  Receive Date: 20141103
  Receipt Date: 20141103
  Transmission Date: 20150529
  Serious: Yes (Other)
  Sender: FDA-Public Use
  Company Number: JP-ROCHE-1483789

PATIENT
  Age: 79 Year
  Sex: Female

DRUGS (3)
  1. FUNGIZONE [Concomitant]
     Active Substance: AMPHOTERICIN B
     Indication: ORAL CANDIDIASIS
     Dosage: 2CC X 4 TIMES/DAY
     Route: 048
     Dates: start: 20141006
  2. HERCEPTIN [Suspect]
     Active Substance: TRASTUZUMAB
     Indication: HER-2 POSITIVE BREAST CANCER
     Route: 041
  3. AZUNOL [Concomitant]
     Active Substance: SODIUM GUALENATE
     Dosage: DOSAGE  UNCERTAIN.
     Route: 048

REACTIONS (1)
  - Hypoaesthesia oral [Recovering/Resolving]

NARRATIVE: CASE EVENT DATE: 20140915
